FAERS Safety Report 21140059 (Version 3)
Quarter: 2022Q3

REPORT INFORMATION
  Report Type: Report from Study
  Country: IN (occurrence: IN)
  Receive Date: 20220728
  Receipt Date: 20220823
  Transmission Date: 20221027
  Serious: Yes (Other)
  Sender: FDA-Public Use
  Company Number: IN-NOVARTISPH-NVSC2022IN167695

PATIENT
  Sex: Female

DRUGS (2)
  1. SECUKINUMAB [Suspect]
     Active Substance: SECUKINUMAB
     Indication: Psoriatic arthropathy
     Dosage: 150 MG, QW (FOR 4 WEEKS)
     Route: 058
  2. SECUKINUMAB [Suspect]
     Active Substance: SECUKINUMAB
     Dosage: 150 MG, QMO (FOR 6 MONTHS)
     Route: 058

REACTIONS (5)
  - Cerebral infarction [Unknown]
  - Mitral valve stenosis [Unknown]
  - Synovitis [Unknown]
  - Joint swelling [Unknown]
  - Osteoarthritis [Unknown]
